FAERS Safety Report 22282758 (Version 1)
Quarter: 2023Q2

REPORT INFORMATION
  Report Type: Spontaneous
  Country: NO (occurrence: NO)
  Receive Date: 20230504
  Receipt Date: 20230504
  Transmission Date: 20230722
  Serious: Yes (Other)
  Sender: FDA-Public Use
  Company Number: NO-GSKCCFEMEA-Case-01720868_AE-70269

PATIENT

DRUGS (1)
  1. BLENREP [Suspect]
     Active Substance: BELANTAMAB MAFODOTIN-BLMF
     Indication: Product used for unknown indication
     Dosage: 185 MG
     Route: 042
     Dates: start: 20221122

REACTIONS (4)
  - Diaphragmatic paralysis [Unknown]
  - Acquired diaphragmatic eventration [Unknown]
  - Dyspnoea [Not Recovered/Not Resolved]
  - Keratitis [Recovered/Resolved]

NARRATIVE: CASE EVENT DATE: 20221221
